FAERS Safety Report 8179147-2 (Version None)
Quarter: 2012Q1

REPORT INFORMATION
  Report Type: 
  Country: None (occurrence: None)
  Receive Date: 20120302
  Receipt Date: 20120228
  Transmission Date: 20120608
  Serious: No
  Sender: FDA-Public Use
  Company Number: US-PFIZER INC-2012053577

PATIENT
  Sex: Male
  Weight: 111 kg

DRUGS (7)
  1. TIKOSYN [Suspect]
     Indication: ARRHYTHMIA
  2. DILTIAZEM HYDROCHLORIDE [Concomitant]
     Indication: ATRIAL FIBRILLATION
     Dosage: 180 MG, DAILY
  3. PRADAXA [Suspect]
     Indication: ANTICOAGULANT THERAPY
     Dosage: 150 MG, 2X/DAY
     Dates: start: 20120212
  4. SINGULAIR [Concomitant]
     Dosage: 10 MG, UNK
  5. TIKOSYN [Suspect]
     Indication: ATRIAL FIBRILLATION
     Dosage: 500 UG, 2X/DAY
     Dates: start: 20120212
  6. PROAIR HFA [Concomitant]
     Indication: ASTHMA
     Dosage: UNK
  7. DILTIAZEM HYDROCHLORIDE [Concomitant]
     Indication: ARRHYTHMIA

REACTIONS (2)
  - FATIGUE [None]
  - PALPITATIONS [None]
